FAERS Safety Report 5496554-7 (Version None)
Quarter: 2007Q4

REPORT INFORMATION
  Report Type: 
  Country: None (occurrence: None)
  Receive Date: 20071023
  Receipt Date: 20070320
  Transmission Date: 20080405
  Serious: Yes (Other)
  Sender: FDA-Public Use
  Company Number: CHNY2007DK03491

PATIENT
  Sex: 0

DRUGS (1)
  1. LAMISIL [Suspect]
     Dosage: TOPICAL
     Route: 061

REACTIONS (3)
  - HAEMORRHAGE [None]
  - RASH [None]
  - SCAR [None]
